FAERS Safety Report 8074694-6 (Version None)
Quarter: 2012Q1

REPORT INFORMATION
  Report Type: 
  Country: None (occurrence: None)
  Receive Date: 20120126
  Receipt Date: 20120123
  Transmission Date: 20120608
  Serious: Yes (Death, Hospitalization, Other)
  Sender: FDA-Public Use
  Company Number: IT-ROCHE-635616

PATIENT

DRUGS (3)
  1. FLUDARABINE PHOSPHATE [Suspect]
     Indication: WALDENSTROM'S MACROGLOBULINAEMIA
     Dosage: DOSE REPORTED: 25 MG/SQM
     Route: 042
  2. CYCLOPHOSPHAMIDE [Suspect]
     Indication: WALDENSTROM'S MACROGLOBULINAEMIA
     Dosage: DOSE REPORTED: 250 MG/SQM 2-4 EVERY FOUR WEEKS
     Route: 042
  3. MABTHERA [Suspect]
     Indication: WALDENSTROM'S MACROGLOBULINAEMIA
     Dosage: DOSE REPORTED AS 375 MG/SQM ON DAY ONE, FORM: INFUSION
     Route: 042

REACTIONS (7)
  - HAEMOLYTIC ANAEMIA [None]
  - NEUTROPENIA [None]
  - DEATH [None]
  - DERMATITIS ALLERGIC [None]
  - ASTHENIA [None]
  - PYREXIA [None]
  - PNEUMONIA [None]
